FAERS Safety Report 7028816-6 (Version None)
Quarter: 2010Q4

REPORT INFORMATION
  Report Type: 
  Country: None (occurrence: None)
  Receive Date: 20101005
  Receipt Date: 20100924
  Transmission Date: 20110411
  Serious: Yes (Death, Life-Threatening, Hospitalization, Other)
  Sender: FDA-Public Use
  Company Number: FR-WYE-H17843110

PATIENT
  Age: 75 Year
  Sex: Male

DRUGS (5)
  1. AMIODARONE [Suspect]
     Indication: ATRIAL FIBRILLATION
     Route: 048
     Dates: start: 20080201, end: 20091020
  2. LOVENOX [Concomitant]
  3. PREVISCAN [Concomitant]
  4. DIAMICRON [Concomitant]
  5. FLECAINIDE ACETATE [Concomitant]

REACTIONS (4)
  - ADENOCARCINOMA [None]
  - HYPERTHYROIDISM [None]
  - INTERSTITIAL LUNG DISEASE [None]
  - METASTASIS [None]
